FAERS Safety Report 9440821 (Version 2)
Quarter: 2013Q3

REPORT INFORMATION
  Report Type: Spontaneous
  Country: DE (occurrence: DE)
  Receive Date: 20130805
  Receipt Date: 20130813
  Transmission Date: 20140515
  Serious: Yes (Other)
  Sender: FDA-Public Use
  Company Number: DE-ASTRAZENECA-2013SE56994

PATIENT
  Sex: Female

DRUGS (2)
  1. PROPOFOL [Suspect]
     Indication: SEDATION
     Route: 042
     Dates: start: 20130701, end: 20130701
  2. PREMEDICATION FOR GASTROSCOPY [Concomitant]

REACTIONS (3)
  - Infusion site extravasation [Recovered/Resolved]
  - Pain in extremity [Recovered/Resolved]
  - Sensorimotor disorder [Recovered/Resolved]
